FAERS Safety Report 4285104-9 (Version None)
Quarter: 2004Q1

REPORT INFORMATION
  Report Type: 
  Country: None (occurrence: None)
  Receive Date: 20040204
  Receipt Date: 20040129
  Transmission Date: 20041129
  Serious: Yes (Hospitalization)
  Sender: FDA-Public Use
  Company Number: US-GLAXOSMITHKLINE-A0495750A

PATIENT
  Age: 63 Year
  Sex: Male

DRUGS (10)
  1. WELLBUTRIN [Suspect]
     Indication: DEPRESSION
     Dosage: 150MG TWICE PER DAY
     Route: 048
     Dates: start: 20030915
  2. LEXAPRO [Concomitant]
  3. AVAPRO [Concomitant]
  4. COUMADIN [Concomitant]
  5. AMIODARONE HCL [Concomitant]
  6. LIPITOR [Concomitant]
  7. SAW PALMETTO [Concomitant]
  8. MULTI-VITAMIN [Concomitant]
  9. TRICOR [Concomitant]
  10. VIAGRA [Concomitant]

REACTIONS (1)
  - RENAL FAILURE ACUTE [None]
